FAERS Safety Report 8101084-X (Version None)
Quarter: 2012Q1

REPORT INFORMATION
  Report Type: 
  Country: None (occurrence: None)
  Receive Date: 20120129
  Receipt Date: 20110907
  Transmission Date: 20120608
  Serious: No
  Sender: FDA-Public Use
  Company Number: US-ABBOTT-11P-163-0852580-00

PATIENT
  Age: 59 Year
  Sex: Male

DRUGS (5)
  1. METOPROLOL TARTRATE [Concomitant]
     Indication: HYPERTENSION
  2. ENALAPRIL [Concomitant]
     Indication: HYPERTENSION
  3. HUMIRA [Suspect]
     Indication: RHEUMATOID ARTHRITIS
  4. HUMIRA [Suspect]
  5. HUMIRA [Suspect]

REACTIONS (5)
  - BLOOD CHOLESTEROL INCREASED [None]
  - VOMITING [None]
  - GASTRIC ULCER [None]
  - DRUG INEFFECTIVE [None]
  - DECREASED APPETITE [None]
